FAERS Safety Report 25772584 (Version 1)
Quarter: 2025Q3

REPORT INFORMATION
  Report Type: Spontaneous
  Country: US (occurrence: US)
  Receive Date: 20250908
  Receipt Date: 20250908
  Transmission Date: 20251021
  Serious: Yes (Other)
  Sender: REGENERON
  Company Number: US-REGENERON PHARMACEUTICALS, INC.-2025-141483

PATIENT
  Sex: Female

DRUGS (1)
  1. PRALUENT [Suspect]
     Active Substance: ALIROCUMAB
     Indication: Hyperlipidaemia
     Dosage: 150 MG, Q2W, EVERY 14 DAYS
     Route: 065

REACTIONS (3)
  - Diabetes mellitus [Unknown]
  - Red blood cell count decreased [Unknown]
  - White blood cell count decreased [Unknown]
